FAERS Safety Report 25402169 (Version 2)
Quarter: 2025Q2

REPORT INFORMATION
  Report Type: Spontaneous
  Country: JP (occurrence: JP)
  Receive Date: 20250605
  Receipt Date: 20250612
  Transmission Date: 20250717
  Serious: Yes (Life-Threatening, Hospitalization, Other)
  Sender: PFIZER
  Company Number: JP-MLMSERVICE-20250521-PI515917-00270-1

PATIENT
  Age: 74 Year
  Sex: Female

DRUGS (4)
  1. METHYLPREDNISOLONE SODIUM SUCCINATE [Suspect]
     Active Substance: METHYLPREDNISOLONE SODIUM SUCCINATE
     Indication: Glomerulonephritis rapidly progressive
     Dosage: 500 MG, DAILY (500 MG/DAY FOR 3 DAYS, PULSE)
  2. METHYLPREDNISOLONE SODIUM SUCCINATE [Suspect]
     Active Substance: METHYLPREDNISOLONE SODIUM SUCCINATE
     Indication: Anti-glomerular basement membrane disease
  3. PREDNISOLONE [Suspect]
     Active Substance: PREDNISOLONE
     Indication: Glomerulonephritis rapidly progressive
     Dosage: 30 MG, DAILY (30 MG/DAY, APPROXIMATELY 0.8 MG/KG/DAY)
     Route: 048
  4. PREDNISOLONE [Suspect]
     Active Substance: PREDNISOLONE
     Indication: Anti-glomerular basement membrane disease
     Dosage: 10 MG/DAY
     Route: 048

REACTIONS (4)
  - Small intestinal haemorrhage [Recovered/Resolved]
  - Cytomegalovirus enteritis [Recovered/Resolved]
  - Shock haemorrhagic [Recovered/Resolved]
  - Off label use [Unknown]
